FAERS Safety Report 8794865 (Version 3)
Quarter: 2013Q2

REPORT INFORMATION
  Report Type: Report from Study
  Country: BR (occurrence: BR)
  Receive Date: 20120917
  Receipt Date: 20130513
  Transmission Date: 20140414
  Serious: Yes (Hospitalization, Other)
  Sender: FDA-Public Use
  Company Number: BR-ROCHE-1115943

PATIENT
  Age: 61 Year
  Sex: Female
  Weight: 55 kg

DRUGS (10)
  1. PEGASYS [Suspect]
     Indication: HEPATITIS
     Route: 065
  2. TROMETAMOL [Concomitant]
     Indication: PRODUCT USED FOR UNKNOWN INDICATION
     Route: 060
  3. RIBAVIRIN [Concomitant]
     Indication: HEPATITIS C
     Route: 065
  4. RANITIDINE HYDROCHLORIDE [Concomitant]
     Indication: ABDOMINAL PAIN UPPER
     Route: 065
  5. RANITIDINE HYDROCHLORIDE [Concomitant]
     Indication: GASTRITIS
  6. AMITRIPTYLINE [Concomitant]
     Indication: DEPRESSION
     Route: 065
  7. HYDROCHLOROTHIAZIDE [Concomitant]
     Indication: HYPERTENSION
     Route: 065
  8. UNSPECIFIED DRUG [Concomitant]
     Indication: RHEUMATIC DISORDER
     Route: 065
  9. KETOROLACO [Concomitant]
     Indication: RENAL PAIN
     Route: 065
  10. HIDROMED [Concomitant]
     Indication: HYPERTENSION
     Route: 065

REACTIONS (9)
  - Eye disorder [Unknown]
  - Drug ineffective [Unknown]
  - Pain [Recovered/Resolved]
  - Headache [Recovered/Resolved]
  - Weight decreased [Recovered/Resolved]
  - Fatigue [Recovered/Resolved]
  - Abdominal distension [Not Recovered/Not Resolved]
  - Malaise [Not Recovered/Not Resolved]
  - Decreased appetite [Recovered/Resolved]
